APPROVED DRUG PRODUCT: LAMPIT
Active Ingredient: NIFURTIMOX
Strength: 120MG
Dosage Form/Route: TABLET;ORAL
Application: N213464 | Product #002
Applicant: BAYER HEALTHCARE PHARMACEUTICALS INC
Approved: Aug 6, 2020 | RLD: Yes | RS: Yes | Type: RX

EXCLUSIVITY:
Code: ODE-319 | Date: Aug 6, 2027